FAERS Safety Report 6055048-0 (Version None)
Quarter: 2009Q1

REPORT INFORMATION
  Report Type: 
  Country: None (occurrence: None)
  Receive Date: 20090122
  Receipt Date: 20090115
  Transmission Date: 20090719
  Serious: Yes (Life-Threatening, Hospitalization)
  Sender: FDA-Public Use
  Company Number: 230001E09DEU

PATIENT
  Age: 38 Year
  Sex: Female
  Weight: 78 kg

DRUGS (3)
  1. REBIF [Suspect]
     Indication: MULTIPLE SCLEROSIS
     Dosage: 44 MCG, 3 IN 1 WEEKS, SUBCUTANEOUS
     Route: 058
     Dates: start: 20070521, end: 20090107
  2. KEPPRA [Concomitant]
  3. ACETAMINOPHEN [Concomitant]

REACTIONS (10)
  - BLOOD PRESSURE DIASTOLIC INCREASED [None]
  - EXOPHTHALMOS [None]
  - GENERAL PHYSICAL HEALTH DETERIORATION [None]
  - HYPOTHERMIA [None]
  - ORAL HERPES [None]
  - PERSONALITY CHANGE [None]
  - PSYCHOMOTOR HYPERACTIVITY [None]
  - SINUSITIS [None]
  - STATUS EPILEPTICUS [None]
  - TELANGIECTASIA [None]
